FAERS Safety Report 5407435-9 (Version None)
Quarter: 2007Q3

REPORT INFORMATION
  Report Type: 
  Country: None (occurrence: None)
  Receive Date: 20070803
  Receipt Date: 20070730
  Transmission Date: 20080115
  Serious: Yes (Death, Other)
  Sender: FDA-Public Use
  Company Number: 2007-01742

PATIENT
  Age: 69 Year
  Sex: Male

DRUGS (10)
  1. VELCADE [Suspect]
     Indication: MULTIPLE MYELOMA
     Dosage: 2.00 MG, INTRAVENOUS
     Route: 042
     Dates: start: 20070504, end: 20070605
  2. DOXORUBICIN HCL [Suspect]
     Indication: MULTIPLE MYELOMA
     Dosage: 18.00 MG, INTRAVENOUS
     Route: 042
     Dates: start: 20070504, end: 20070605
  3. DEXAMETHASONE [Suspect]
     Indication: MULTIPLE MYELOMA
     Dosage: 40.00 MG, INTRAVENOUS
     Route: 042
     Dates: start: 20070504, end: 20070605
  4. ZOCOR [Concomitant]
  5. BETALOC (METOPROLOL TARTRATE) [Concomitant]
  6. FUROSEMIDE [Concomitant]
  7. CLODRONATE DISODIUM (CLODRONATE DISODIUM) [Concomitant]
  8. PARALEN (PARACETAMOL) [Concomitant]
  9. ACYCLOVIR [Concomitant]
  10. SULFAMETHOXAZOLE + TRIMETHOPRIM [Concomitant]

REACTIONS (5)
  - BACK PAIN [None]
  - DISEASE PROGRESSION [None]
  - INFECTION [None]
  - MUSCULOSKELETAL PAIN [None]
  - PSYCHOTIC DISORDER [None]
